FAERS Safety Report 4583567-2 (Version None)
Quarter: 2005Q1

REPORT INFORMATION
  Report Type: 
  Country: None (occurrence: None)
  Receive Date: 20050211
  Receipt Date: 20050128
  Transmission Date: 20050727
  Serious: Yes (Hospitalization)
  Sender: FDA-Public Use
  Company Number: CERZ-10773

PATIENT
  Age: 6 Year
  Sex: Female
  Weight: 13 kg

DRUGS (14)
  1. CEREZYME [Suspect]
     Indication: GAUCHER'S DISEASE
     Dosage: 46 U/KG QWK IV
     Route: 042
     Dates: start: 20010315
  2. CEREZYME [Suspect]
  3. CLONAZEPAM [Concomitant]
  4. ZONISAMIDE [Concomitant]
  5. DANTROLENE SODIUM [Concomitant]
  6. DIAZEPAM [Concomitant]
  7. TRICHLORETHYL PHOSPHATE SODIUM [Concomitant]
  8. CARBOCYSTEINE [Concomitant]
  9. AMBROXOL [Concomitant]
  10. MOSAPRIDE CITRATE [Concomitant]
  11. SODIUM/POTASSIUM/MAGNESIUM [Concomitant]
  12. PEMIROLAST [Concomitant]
  13. LEVOFLOXACIN [Concomitant]
  14. FAMOTIDINE [Concomitant]

REACTIONS (4)
  - CONDITION AGGRAVATED [None]
  - CONSTIPATION [None]
  - CYSTITIS [None]
  - REFLUX OESOPHAGITIS [None]
